FAERS Safety Report 15281267 (Version 1)
Quarter: 2018Q3

REPORT INFORMATION
  Report Type: Spontaneous
  Country: US (occurrence: US)
  Receive Date: 20180731
  Receipt Date: 20180731
  Transmission Date: 20181010
  Serious: Yes (Other)
  Sender: FDA-Public Use
  Company Number: None

PATIENT
  Age: 56 Year
  Sex: Female
  Weight: 81 kg

DRUGS (1)
  1. TECFIDERA [Suspect]
     Active Substance: DIMETHYL FUMARATE
     Indication: MULTIPLE SCLEROSIS
     Dosage: ?          OTHER STRENGTH:DON^T KNOW;QUANTITY:1 TABLET(S);?
     Route: 048
     Dates: start: 20180702, end: 20180702

REACTIONS (3)
  - Seizure [None]
  - Overweight [None]
  - Loss of consciousness [None]

NARRATIVE: CASE EVENT DATE: 20180702
